FAERS Safety Report 6657490-3 (Version None)
Quarter: 2010Q1

REPORT INFORMATION
  Report Type: 
  Country: None (occurrence: None)
  Receive Date: 20100330
  Receipt Date: 20100318
  Transmission Date: 20100710
  Serious: Yes (Death)
  Sender: FDA-Public Use
  Company Number: US-MYLANLABS-2010S1004689

PATIENT
  Age: 75 Year
  Sex: Female
  Weight: 59.88 kg

DRUGS (2)
  1. HYDROCHLOROTHIAZIDE [Suspect]
     Indication: HYPERTENSION
     Dates: start: 20091113
  2. LISINOPRIL [Suspect]
     Indication: HYPERTENSION
     Dates: start: 20091012

REACTIONS (6)
  - BLOOD PRESSURE DIASTOLIC INCREASED [None]
  - BLOOD PRESSURE SYSTOLIC INCREASED [None]
  - EXPIRED DRUG ADMINISTERED [None]
  - HEART RATE DECREASED [None]
  - MYOCARDIAL INFARCTION [None]
  - PRODUCT MEASURED POTENCY ISSUE [None]
